FAERS Safety Report 8635889 (Version 7)
Quarter: 2013Q2

REPORT INFORMATION
  Report Type: Spontaneous
  Country: US (occurrence: None)
  Receive Date: 20120604
  Receipt Date: 20130529
  Transmission Date: 20140414
  Serious: Yes (Hospitalization, Other)
  Sender: FDA-Public Use
  Company Number: 2012032393

PATIENT
  Age: 39 Year
  Sex: Male
  Weight: 104.78 kg

DRUGS (7)
  1. BERINERT [Suspect]
     Indication: HEREDITARY ANGIOEDEMA
     Dosage: (NOT OTHERWISE SPECIFIED)
     Route: 042
     Dates: start: 201205
  2. CINRYZE [Suspect]
     Indication: HEREDITARY ANGIOEDEMA
     Dosage: 1X/4 DAYS, SINCE OCT-2011?INTRAVENOUS (NOT OTHERWISE SPECIFIED) ?1000 IU 1X/3DAYS?1000 IU QOD?SINCE JAN-2012 INTRANEOUS (NOT OTHERWISE SPECIFIED)
     Route: 042
     Dates: start: 20120719
  3. COUMADIN (WARFARIN SODIUIM) [Concomitant]
  4. LOVENOX (ENOXAPARIN SODIUM) [Concomitant]
  5. INSULIN (INSULIN) [Concomitant]
  6. CEFAZOLIN (CEFAZOLIN) [Concomitant]
  7. BLOOD PRESSURE MEDS (ALL OTHER THERAPEUTIC PRODUCTS) [Concomitant]

REACTIONS (14)
  - Wound infection staphylococcal [None]
  - Catheter site infection [None]
  - Venous thrombosis [None]
  - Pain in extremity [None]
  - Device occlusion [None]
  - Swelling [None]
  - Local swelling [None]
  - Hereditary angioedema [None]
  - Disease recurrence [None]
  - Local swelling [None]
  - Staphylococcal infection [None]
  - Thrombosis [None]
  - Headache [None]
  - Treatment noncompliance [None]
